FAERS Safety Report 14222101 (Version 2)
Quarter: 2018Q4

REPORT INFORMATION
  Report Type: Spontaneous
  Country: FR (occurrence: FR)
  Receive Date: 20171124
  Receipt Date: 20181026
  Transmission Date: 20190204
  Serious: Yes (Disabling)
  Sender: FDA-Public Use
  Company Number: FR-MERCK KGAA-2034992

PATIENT
  Age: 61 Year
  Sex: Female

DRUGS (1)
  1. EUTHYROX [Suspect]
     Active Substance: LEVOTHYROXINE SODIUM
     Indication: PRODUCT USED FOR UNKNOWN INDICATION
     Dates: start: 201706

REACTIONS (12)
  - Insomnia [None]
  - Alopecia [None]
  - Gait disturbance [None]
  - Asthenia [None]
  - Arthralgia [None]
  - Fatigue [None]
  - Headache [None]
  - Impatience [None]
  - Irritability [None]
  - Vertigo [None]
  - Dyspnoea [None]
  - Palpitations [None]

NARRATIVE: CASE EVENT DATE: 2017
